FAERS Safety Report 8520005-9 (Version None)
Quarter: 2012Q3

REPORT INFORMATION
  Report Type: 
  Country: None (occurrence: None)
  Receive Date: 20120719
  Receipt Date: 20120716
  Transmission Date: 20120928
  Serious: Yes (Hospitalization)
  Sender: FDA-Public Use
  Company Number: US-PFIZER INC-2011271897

PATIENT
  Sex: Female

DRUGS (2)
  1. XALKORI [Suspect]
     Dosage: 250 MG, 2X/DAY
     Dates: start: 20120622
  2. XALKORI [Suspect]
     Indication: LUNG NEOPLASM MALIGNANT
     Dosage: 250 MG, UNK
     Dates: start: 20111001

REACTIONS (11)
  - BACK PAIN [None]
  - DIZZINESS POSTURAL [None]
  - STOMATITIS [None]
  - CONSTIPATION [None]
  - ARTHRALGIA [None]
  - BLOOD GLUCOSE INCREASED [None]
  - DYSGEUSIA [None]
  - VOMITING [None]
  - PRODUCTIVE COUGH [None]
  - PAIN IN EXTREMITY [None]
  - NAUSEA [None]
